FAERS Safety Report 22348168 (Version 1)
Quarter: 2023Q2

REPORT INFORMATION
  Report Type: Spontaneous
  Country: None (occurrence: US)
  Receive Date: 20230522
  Receipt Date: 20230522
  Transmission Date: 20230722
  Serious: Yes (Other)
  Sender: FDA-Public Use
  Company Number: US-Oxford Pharmaceuticals, LLC-2141815

PATIENT
  Age: 31 Year
  Sex: Female

DRUGS (3)
  1. BENZTROPINE MESYLATE [Suspect]
     Active Substance: BENZTROPINE MESYLATE
     Indication: Product used for unknown indication
     Route: 048
  2. RISPERIDONE [Suspect]
     Active Substance: RISPERIDONE
     Route: 048
  3. HALOPERIDOL [Suspect]
     Active Substance: HALOPERIDOL
     Route: 048

REACTIONS (2)
  - Tardive dyskinesia [Recovered/Resolved]
  - Withdrawal syndrome [Recovered/Resolved]
